FAERS Safety Report 8474708-5 (Version None)
Quarter: 2012Q2

REPORT INFORMATION
  Report Type: 
  Country: None (occurrence: None)
  Receive Date: 20120628
  Receipt Date: 20120625
  Transmission Date: 20120825
  Serious: Yes (Life-Threatening, Hospitalization, Other)
  Sender: FDA-Public Use
  Company Number: US-BAYER-2012-059082

PATIENT
  Age: 70 Year
  Sex: Male
  Weight: 43.7 kg

DRUGS (12)
  1. SORAFENIB (RAF KINASE INHIBITOR) [Suspect]
     Indication: HEPATIC NEOPLASM MALIGNANT
     Dosage: 200 MG, BID
     Route: 048
     Dates: start: 20111128, end: 20120112
  2. AMLODIPINE [Concomitant]
     Indication: HYPERTENSION
     Dosage: UNK
     Dates: start: 20010101
  3. NAPROXEN [Concomitant]
     Indication: ARTHRALGIA
     Dosage: UNK
     Dates: start: 20111114
  4. METHYL SALICYLATE [Concomitant]
     Indication: ARTHRALGIA
     Dosage: UNK
     Dates: start: 20010101
  5. HYDROCODONE BITARTRATE [Concomitant]
     Indication: PAIN
     Dosage: UNK
     Dates: start: 20110715
  6. CONTRAST MEDIA [Suspect]
     Indication: COMPUTERISED TOMOGRAM
     Dosage: UNK
     Dates: start: 20120109, end: 20120109
  7. BENAZEPRIL [Concomitant]
     Indication: HYPERTENSION
     Dosage: UNK
     Dates: start: 20010101
  8. MIRALAX [Concomitant]
     Indication: CONSTIPATION PROPHYLAXIS
     Dosage: UNK
  9. TEMSIROLIMUS [Suspect]
     Indication: HEPATIC NEOPLASM MALIGNANT
     Dosage: 10 MG, OW
     Route: 042
     Dates: start: 20111121, end: 20120109
  10. OXYCODONE HCL [Concomitant]
     Indication: PAIN
  11. FINASTERIDE [Concomitant]
     Dosage: UNK
     Dates: start: 20090101
  12. COLACE [Concomitant]
     Indication: CONSTIPATION PROPHYLAXIS
     Dosage: UNK
     Dates: start: 20111128

REACTIONS (3)
  - BLOOD CREATININE INCREASED [None]
  - UROSEPSIS [None]
  - LOBAR PNEUMONIA [None]
